FAERS Safety Report 11733918 (Version 5)
Quarter: 2016Q3

REPORT INFORMATION
  Report Type: Spontaneous
  Country: US (occurrence: US)
  Receive Date: 20151113
  Receipt Date: 20160701
  Transmission Date: 20161109
  Serious: Yes (Disabling, Other)
  Sender: FDA-Public Use
  Company Number: US-ASTRAZENECA-2012SE74385

PATIENT
  Age: 51 Year
  Sex: Female
  Weight: 103.9 kg

DRUGS (37)
  1. CRESTOR [Suspect]
     Active Substance: ROSUVASTATIN CALCIUM
     Indication: BLOOD CHOLESTEROL INCREASED
     Dosage: UNKNOWN
     Route: 048
     Dates: start: 20080320
  2. DIOVAN [Concomitant]
     Active Substance: VALSARTAN
     Route: 065
  3. LOTREL [Concomitant]
     Active Substance: AMLODIPINE BESYLATE\BENAZEPRIL HYDROCHLORIDE
     Route: 065
     Dates: start: 20060628
  4. PROXETINE [Concomitant]
     Route: 065
     Dates: start: 20101210
  5. GABAPENTIN. [Concomitant]
     Active Substance: GABAPENTIN
     Route: 065
     Dates: start: 20121019
  6. LEXAPRO [Concomitant]
     Active Substance: ESCITALOPRAM OXALATE
     Dates: start: 20050822
  7. TEKTURNA [Concomitant]
     Active Substance: ALISKIREN HEMIFUMARATE
     Route: 065
     Dates: start: 20070803
  8. TRAMADOL. [Concomitant]
     Active Substance: TRAMADOL
     Route: 065
     Dates: start: 20070803
  9. NAPROXEN. [Concomitant]
     Active Substance: NAPROXEN
     Route: 065
     Dates: start: 20080522
  10. DICLOFENAC [Concomitant]
     Active Substance: DICLOFENAC
     Route: 065
     Dates: start: 20100617
  11. MINTOX [Concomitant]
     Active Substance: ALUMINUM HYDROXIDE\DIMETHICONE\MAGNESIUM HYDROXIDE
  12. CRESTOR [Suspect]
     Active Substance: ROSUVASTATIN CALCIUM
     Indication: BLOOD CHOLESTEROL INCREASED
     Route: 048
     Dates: start: 1989
  13. CRESTOR [Suspect]
     Active Substance: ROSUVASTATIN CALCIUM
     Indication: BLOOD CHOLESTEROL INCREASED
     Dosage: 20.0MG UNKNOWN
     Route: 048
     Dates: start: 20070326
  14. TOPROL XL [Concomitant]
     Active Substance: METOPROLOL SUCCINATE
     Route: 065
     Dates: start: 20051018
  15. IMITREX [Concomitant]
     Active Substance: SUMATRIPTAN SUCCINATE
     Route: 065
     Dates: start: 20060930
  16. TYLENOL [Concomitant]
     Active Substance: ACETAMINOPHEN
     Route: 065
     Dates: start: 20061030
  17. CELEBREX [Concomitant]
     Active Substance: CELECOXIB
     Route: 065
     Dates: start: 20070129
  18. MECLIZINE [Concomitant]
     Active Substance: MECLIZINE HYDROCHLORIDE
     Route: 065
     Dates: start: 20070807
  19. TRIBENZOR [Concomitant]
     Active Substance: AMLODIPINE BESYLATE\HYDROCHLOROTHIAZIDE\OLMESARTAN MEDOXOMIL
     Route: 065
  20. HYZAAR [Concomitant]
     Active Substance: HYDROCHLOROTHIAZIDE\LOSARTAN POTASSIUM
     Dates: start: 20050523
  21. PRAVACHOL [Concomitant]
     Active Substance: PRAVASTATIN SODIUM
     Route: 065
     Dates: start: 20051018
  22. CLONIDIN [Concomitant]
     Active Substance: CLONIDINE
     Route: 065
     Dates: start: 20111017
  23. JANUVIA [Concomitant]
     Active Substance: SITAGLIPTIN PHOSPHATE
     Route: 065
     Dates: start: 20130320
  24. ZOCOR [Concomitant]
     Active Substance: SIMVASTATIN
     Dates: start: 20041221
  25. AMBIEN [Concomitant]
     Active Substance: ZOLPIDEM TARTRATE
     Route: 065
     Dates: start: 20060112
  26. MOBIC [Concomitant]
     Active Substance: MELOXICAM
     Route: 065
     Dates: start: 20051018
  27. FUROSEMIDE. [Concomitant]
     Active Substance: FUROSEMIDE
     Route: 065
  28. METFORMIN [Concomitant]
     Active Substance: METFORMIN HYDROCHLORIDE
     Route: 065
     Dates: start: 20111017
  29. DONEPEZIL. [Concomitant]
     Active Substance: DONEPEZIL
     Dates: start: 20140617
  30. ASPIRIN. [Concomitant]
     Active Substance: ASPIRIN
     Route: 065
     Dates: start: 20051018
  31. ALPRAZOLAM. [Concomitant]
     Active Substance: ALPRAZOLAM
     Route: 065
     Dates: start: 20060628
  32. MISOPROSTOL. [Concomitant]
     Active Substance: MISOPROSTOL
     Route: 065
     Dates: start: 20100617
  33. GLIPIZIDE. [Concomitant]
     Active Substance: GLIPIZIDE
     Route: 065
     Dates: start: 20120416
  34. NORVASC [Concomitant]
     Active Substance: AMLODIPINE BESYLATE
     Route: 065
     Dates: start: 20051215
  35. NEXIUM [Concomitant]
     Active Substance: ESOMEPRAZOLE MAGNESIUM
     Indication: GASTRIC PH DECREASED
     Route: 065
     Dates: start: 20060614
  36. LOVAZA [Concomitant]
     Active Substance: OMEGA-3-ACID ETHYL ESTERS
  37. TOBRADEX [Concomitant]
     Active Substance: DEXAMETHASONE\TOBRAMYCIN
     Dosage: 0.1-0.3 PERCENT, AT BEDTIME
     Dates: start: 20160211

REACTIONS (6)
  - Angina pectoris [Not Recovered/Not Resolved]
  - Type 2 diabetes mellitus [Not Recovered/Not Resolved]
  - Arrhythmia [Not Recovered/Not Resolved]
  - Diabetic neuropathy [Unknown]
  - Gastric pH decreased [Not Recovered/Not Resolved]
  - Hypertension [Not Recovered/Not Resolved]

NARRATIVE: CASE EVENT DATE: 1989
